FAERS Safety Report 8044997-X (Version None)
Quarter: 2012Q1

REPORT INFORMATION
  Report Type: 
  Country: None (occurrence: None)
  Receive Date: 20120113
  Receipt Date: 20120106
  Transmission Date: 20120608
  Serious: Yes (Hospitalization, Other)
  Sender: FDA-Public Use
  Company Number: PHHY2012CA001114

PATIENT
  Sex: Female

DRUGS (13)
  1. ZOLEDRONOC ACID [Suspect]
     Dosage: 5 MG, UNK
     Route: 042
     Dates: start: 20110310
  2. ACETAMINOPHEN [Concomitant]
     Dosage: UNK UKN, UNK
  3. ASPIRIN [Concomitant]
     Dosage: UNK UKN, UNK
  4. EFFEXOR [Concomitant]
     Dosage: UNK UKN, UNK
  5. ADVAIR DISKUS 100/50 [Concomitant]
     Dosage: UNK UKN, UNK
  6. VITAMIN D [Concomitant]
     Dosage: UNK UKN, UNK
  7. LIPITOR [Concomitant]
     Dosage: UNK UKN, UNK
  8. SPIRIVA [Concomitant]
     Dosage: UNK UKN, UNK
  9. ZOLEDRONOC ACID [Suspect]
     Dosage: 5 MG, UNK
     Route: 042
     Dates: start: 20100304
  10. SYNTHROID [Concomitant]
  11. ZOLEDRONOC ACID [Suspect]
     Indication: OSTEOPOROSIS
     Dosage: 5 MG, UNK
     Route: 042
     Dates: start: 20090310
  12. VENTOLIN [Concomitant]
  13. CALCIUM [Concomitant]
     Dosage: UNK UKN, UNK

REACTIONS (16)
  - BLOOD MAGNESIUM DECREASED [None]
  - LUNG INFILTRATION [None]
  - DYSPNOEA [None]
  - THROAT TIGHTNESS [None]
  - GAMMA-GLUTAMYLTRANSFERASE INCREASED [None]
  - ANAEMIA [None]
  - WHITE BLOOD CELL COUNT INCREASED [None]
  - PYREXIA [None]
  - HAEMOGLOBIN DECREASED [None]
  - COUGH [None]
  - SUBCLAVIAN STEAL SYNDROME [None]
  - PNEUMONIA ASPIRATION [None]
  - ASPIRATION [None]
  - DYSPHAGIA [None]
  - BLOOD CREATININE INCREASED [None]
  - BLOOD ALBUMIN DECREASED [None]
